FAERS Safety Report 23032483 (Version 2)
Quarter: 2023Q4

REPORT INFORMATION
  Report Type: Report from Study
  Country: ZA (occurrence: ZA)
  Receive Date: 20231005
  Receipt Date: 20231016
  Transmission Date: 20240110
  Serious: Yes (Death)
  Sender: FDA-Public Use
  Company Number: ZA-BAYER-2023A139728

PATIENT
  Sex: Male

DRUGS (3)
  1. EYLEA [Suspect]
     Active Substance: AFLIBERCEPT
     Indication: Macular oedema
     Dosage: 1XVIAL, SOLUTION FOR INJECTION, 40 MG/ML
     Dates: start: 20221117, end: 20221117
  2. EYLEA [Suspect]
     Active Substance: AFLIBERCEPT
     Dosage: 1XVIAL, SOLUTION FOR INJECTION, 40 MG/ML
     Dates: start: 20221206, end: 20221206
  3. EYLEA [Suspect]
     Active Substance: AFLIBERCEPT
     Dosage: 1XVIAL, SOLUTION FOR INJECTION, 40 MG/ML
     Dates: start: 20230209, end: 20230209

REACTIONS (1)
  - Death [Fatal]
